FAERS Safety Report 10149918 (Version 1)
Quarter: 2014Q2

REPORT INFORMATION
  Report Type: Spontaneous
  Country: US (occurrence: None)
  Receive Date: 20140501
  Receipt Date: 20140501
  Transmission Date: 20141212
  Serious: No
  Sender: FDA-Public Use
  Company Number: None

PATIENT
  Age: 36 Year
  Sex: Female
  Weight: 45.36 kg

DRUGS (1)
  1. CHANTIX [Suspect]
     Indication: SMOKING CESSATION THERAPY
     Dosage: 1 PILL TWICE DAILY

REACTIONS (7)
  - Drug ineffective [None]
  - Abnormal dreams [None]
  - Anxiety [None]
  - Fear [None]
  - Hostility [None]
  - Anger [None]
  - Therapeutic response changed [None]
